FAERS Safety Report 6865689-6 (Version None)
Quarter: 2010Q3

REPORT INFORMATION
  Report Type: 
  Country: None (occurrence: None)
  Receive Date: 20100721
  Receipt Date: 20080427
  Transmission Date: 20110219
  Serious: No
  Sender: FDA-Public Use
  Company Number: US-PFIZER INC-2008037372

PATIENT
  Sex: Female
  Weight: 44.5 kg

DRUGS (6)
  1. CHANTIX [Suspect]
     Indication: SMOKING CESSATION THERAPY
     Dates: start: 20080401
  2. NORCO [Concomitant]
  3. DIAZEPAM [Concomitant]
  4. SPIRIVA [Concomitant]
  5. ADVAIR DISKUS 100/50 [Concomitant]
  6. PROTONIX [Concomitant]

REACTIONS (3)
  - DYSGEUSIA [None]
  - DYSPHAGIA [None]
  - ORAL DISORDER [None]
